FAERS Safety Report 5651431-3 (Version None)
Quarter: 2008Q1

REPORT INFORMATION
  Report Type: 
  Country: None (occurrence: None)
  Receive Date: 20080305
  Receipt Date: 20080222
  Transmission Date: 20080703
  Serious: Yes (Hospitalization, Other)
  Sender: FDA-Public Use
  Company Number: US-ELI_LILLY_AND_COMPANY-US200802005506

PATIENT
  Sex: Male

DRUGS (2)
  1. PROZAC [Suspect]
  2. WELLBUTRIN [Concomitant]

REACTIONS (5)
  - BRAIN NEOPLASM [None]
  - CONVULSION [None]
  - MENTAL DISORDER [None]
  - NERVOUS SYSTEM DISORDER [None]
  - PHYSICAL DISABILITY [None]
